FAERS Safety Report 5383213-4 (Version None)
Quarter: 2007Q3

REPORT INFORMATION
  Report Type: 
  Country: None (occurrence: None)
  Receive Date: 20070710
  Receipt Date: 20070628
  Transmission Date: 20080115
  Serious: Yes (Hospitalization)
  Sender: FDA-Public Use
  Company Number: GB-PFIZER INC-2007054133

PATIENT
  Sex: Female

DRUGS (4)
  1. EPANUTIN SUSPENSION [Suspect]
     Indication: EPILEPSY
  2. CIPROFLOXACIN [Suspect]
     Indication: BREAST DISORDER
  3. CHEMOTHERAPY NOS [Suspect]
     Indication: BREAST DISORDER
  4. FLOXACILLIN SODIUM [Suspect]
     Indication: BREAST DISORDER

REACTIONS (6)
  - ANTICONVULSANT DRUG LEVEL INCREASED [None]
  - BREAST DISORDER [None]
  - DYSGEUSIA [None]
  - FEELING ABNORMAL [None]
  - HEAD DISCOMFORT [None]
  - MALAISE [None]
